FAERS Safety Report 15728701 (Version 1)
Quarter: 2018Q4

REPORT INFORMATION
  Report Type: Spontaneous
  Country: US (occurrence: US)
  Receive Date: 20181214
  Receipt Date: 20181214
  Transmission Date: 20190205
  Serious: Yes (Hospitalization)
  Sender: FDA-Public Use
  Company Number: None

PATIENT
  Age: 63 Year
  Sex: Female

DRUGS (3)
  1. ACTEMRA [Suspect]
     Active Substance: TOCILIZUMAB
     Indication: RHEUMATOID ARTHRITIS
     Dosage: ?          OTHER FREQUENCY:EVERY 7 DAYS;?
     Route: 058
     Dates: start: 20171211
  2. LYRICA 150MG CAPSULE [Concomitant]
     Dates: start: 20160922
  3. METHOTREXATE 2.5MG TABLETS [Concomitant]
     Active Substance: METHOTREXATE
     Dates: start: 20160517

REACTIONS (2)
  - Therapy cessation [None]
  - Surgery [None]
